FAERS Safety Report 4736737-4 (Version None)
Quarter: 2005Q3

REPORT INFORMATION
  Report Type: 
  Country: None (occurrence: None)
  Receive Date: 20050808
  Receipt Date: 20050804
  Transmission Date: 20060218
  Serious: Yes (Death)
  Sender: FDA-Public Use
  Company Number: ZA-BOEHRINGER INGELHEIM PHARMACEUTICALS, INC.-2005-BP-13282BP

PATIENT
  Sex: Female

DRUGS (6)
  1. VIRAMUNE [Suspect]
     Indication: HIV INFECTION
     Route: 048
     Dates: start: 20040512, end: 20040705
  2. STAVUDINE [Suspect]
     Indication: HIV INFECTION
     Route: 048
     Dates: start: 20040512, end: 20040605
  3. LAMIVUDINE [Suspect]
     Indication: HIV INFECTION
     Route: 048
     Dates: start: 20040512, end: 20040705
  4. INH [Concomitant]
     Dates: start: 20040429, end: 20040625
  5. CO-TRIMOXAZOLE [Concomitant]
     Dates: start: 20040429, end: 20040625
  6. PYRIDOXINE HCL [Concomitant]
     Dates: start: 20040429, end: 20040625

REACTIONS (3)
  - BLOOD GLUCOSE INCREASED [None]
  - HAEMOGLOBIN DECREASED [None]
  - LACTIC ACIDOSIS [None]
